FAERS Safety Report 6816241-X (Version None)
Quarter: 2010Q3

REPORT INFORMATION
  Report Type: 
  Country: None (occurrence: None)
  Receive Date: 20100702
  Receipt Date: 20100702
  Transmission Date: 20110219
  Serious: Yes (Death, Hospitalization)
  Sender: FDA-Public Use
  Company Number: None

PATIENT
  Sex: Male
  Weight: 95 kg

DRUGS (2)
  1. CARBOPLATIN [Suspect]
     Dosage: 730 MG
     Dates: end: 20100601
  2. TAXOL [Suspect]
     Dosage: 420 MG
     Dates: end: 20100601

REACTIONS (8)
  - ABDOMINAL DISTENSION [None]
  - HYPOAESTHESIA [None]
  - HYPOPHAGIA [None]
  - MALIGNANT NEOPLASM PROGRESSION [None]
  - METASTASES TO CENTRAL NERVOUS SYSTEM [None]
  - MUSCULAR WEAKNESS [None]
  - NON-SMALL CELL LUNG CANCER METASTATIC [None]
  - PAIN [None]
